FAERS Safety Report 13449257 (Version 1)
Quarter: 2017Q2

REPORT INFORMATION
  Report Type: Spontaneous
  Country: IE (occurrence: IE)
  Receive Date: 20170417
  Receipt Date: 20170417
  Transmission Date: 20170830
  Serious: Yes (Disabling, Other)
  Sender: FDA-Public Use
  Company Number: IE-PFIZER INC-2017160809

PATIENT
  Age: 49 Year
  Sex: Male

DRUGS (2)
  1. LYRICA [Suspect]
     Active Substance: PREGABALIN
     Indication: ANKYLOSING SPONDYLITIS
     Dosage: 50 MG, 1X/DAY (50MG NOCTE)
     Route: 048
     Dates: start: 20160615, end: 20170201
  2. ENBREL [Concomitant]
     Active Substance: ETANERCEPT
     Dosage: 1 DF, WEEKLY
     Dates: start: 20141215, end: 20170324

REACTIONS (9)
  - Erectile dysfunction [Recovered/Resolved]
  - Pre-existing condition improved [Unknown]
  - Muscle spasms [Recovered/Resolved]
  - Drug use disorder [Recovered/Resolved]
  - Impaired work ability [Unknown]
  - Therapeutic response unexpected [Unknown]
  - Agitation [Recovered/Resolved]
  - Libido decreased [Recovered/Resolved]
  - Muscle strain [Recovered/Resolved]
